FAERS Safety Report 25785174 (Version 1)
Quarter: 2025Q3

REPORT INFORMATION
  Report Type: Report from Study
  Country: IN (occurrence: IN)
  Receive Date: 20250910
  Receipt Date: 20250910
  Transmission Date: 20251020
  Serious: Yes (Death, Other)
  Sender: CIPLA
  Company Number: IN-CIPLA LTD.-2025IN11267

PATIENT

DRUGS (91)
  1. ACYCLOVIR [Suspect]
     Active Substance: ACYCLOVIR
     Indication: Varicella
     Dosage: 200 MILLIGRAM, TID (TDS) (1/2 TAB FOR 3 TIMES A DAY)
     Route: 048
     Dates: start: 20250310, end: 20250818
  2. ACYCLOVIR [Suspect]
     Active Substance: ACYCLOVIR
     Indication: Prophylaxis
  3. PREDNISOLONE [Concomitant]
     Active Substance: PREDNISOLONE
     Indication: Philadelphia chromosome positive
     Route: 042
     Dates: start: 20250316
  4. PREDNISOLONE [Concomitant]
     Active Substance: PREDNISOLONE
     Indication: Acute lymphocytic leukaemia
     Route: 042
     Dates: start: 20250317
  5. PREDNISOLONE [Concomitant]
     Active Substance: PREDNISOLONE
     Route: 042
     Dates: start: 20250318
  6. PREDNISOLONE [Concomitant]
     Active Substance: PREDNISOLONE
     Route: 042
     Dates: start: 20250319
  7. PREDNISOLONE [Concomitant]
     Active Substance: PREDNISOLONE
     Route: 042
     Dates: start: 20250320
  8. PREDNISOLONE [Concomitant]
     Active Substance: PREDNISOLONE
     Route: 042
     Dates: start: 20250321
  9. DASATINIB [Concomitant]
     Active Substance: DASATINIB
     Indication: Philadelphia chromosome positive
     Dosage: 80 MILLIGRAM/SQ. METER, QD
     Route: 065
     Dates: start: 20250303
  10. DASATINIB [Concomitant]
     Active Substance: DASATINIB
     Indication: Acute lymphocytic leukaemia
     Dosage: 80 MILLIGRAM/SQ. METER, QD
     Route: 065
     Dates: start: 20250304
  11. DASATINIB [Concomitant]
     Active Substance: DASATINIB
     Dosage: 80 MILLIGRAM/SQ. METER, QD
     Route: 065
     Dates: start: 20250305
  12. DASATINIB [Concomitant]
     Active Substance: DASATINIB
     Dosage: 80 MILLIGRAM/SQ. METER, QD
     Route: 065
     Dates: start: 20250306
  13. DASATINIB [Concomitant]
     Active Substance: DASATINIB
     Dosage: 80 MILLIGRAM/SQ. METER, QD
     Route: 065
     Dates: start: 20250307
  14. DASATINIB [Concomitant]
     Active Substance: DASATINIB
     Dosage: 80 MILLIGRAM/SQ. METER, QD
     Route: 065
     Dates: start: 20250310
  15. DASATINIB [Concomitant]
     Active Substance: DASATINIB
     Dosage: 80 MILLIGRAM/SQ. METER, QD
     Route: 065
     Dates: start: 20250311
  16. DASATINIB [Concomitant]
     Active Substance: DASATINIB
     Dosage: 80 MILLIGRAM/SQ. METER, QD
     Route: 065
     Dates: start: 20250312
  17. DASATINIB [Concomitant]
     Active Substance: DASATINIB
     Dosage: 80 MILLIGRAM/SQ. METER, QD
     Route: 065
     Dates: start: 20250313
  18. DASATINIB [Concomitant]
     Active Substance: DASATINIB
     Dosage: 80 MILLIGRAM/SQ. METER, QD
     Route: 065
     Dates: start: 20250314
  19. DASATINIB [Concomitant]
     Active Substance: DASATINIB
     Dosage: 80 MILLIGRAM/SQ. METER, QD
     Route: 065
     Dates: start: 20250315
  20. DASATINIB [Concomitant]
     Active Substance: DASATINIB
     Dosage: 70 MILLIGRAM/SQ. METER, QD
     Route: 065
     Dates: start: 20250326
  21. DASATINIB [Concomitant]
     Active Substance: DASATINIB
     Dosage: 80 MILLIGRAM/SQ. METER, QD
     Route: 065
     Dates: start: 20250302
  22. VINCRISTINE [Concomitant]
     Active Substance: VINCRISTINE
     Indication: Philadelphia chromosome positive
     Route: 042
     Dates: start: 20250222
  23. VINCRISTINE [Concomitant]
     Active Substance: VINCRISTINE
     Indication: Acute lymphocytic leukaemia
     Route: 042
     Dates: start: 20250301
  24. VINCRISTINE [Concomitant]
     Active Substance: VINCRISTINE
     Route: 042
     Dates: start: 20250316
  25. VINCRISTINE [Concomitant]
     Active Substance: VINCRISTINE
     Route: 042
     Dates: start: 20250410
  26. VINCRISTINE [Concomitant]
     Active Substance: VINCRISTINE
     Route: 042
     Dates: start: 20250417
  27. VINCRISTINE [Concomitant]
     Active Substance: VINCRISTINE
     Route: 042
     Dates: start: 20250508
  28. VINCRISTINE [Concomitant]
     Active Substance: VINCRISTINE
     Route: 042
     Dates: start: 20250516
  29. MERCAPTOPURINE [Concomitant]
     Active Substance: MERCAPTOPURINE
     Indication: Philadelphia chromosome positive
     Dosage: 60 MILLIGRAM, QD DAILY, AT NIGHT, DAY 1-14 + DAY 29-42
     Route: 065
     Dates: start: 20250326
  30. MERCAPTOPURINE [Concomitant]
     Active Substance: MERCAPTOPURINE
     Indication: Acute lymphocytic leukaemia
     Dosage: 60 MILLIGRAM, QD DAILY, AT NIGHT, DAY 1-14 + DAY 29-42
     Route: 065
     Dates: start: 20250327
  31. MERCAPTOPURINE [Concomitant]
     Active Substance: MERCAPTOPURINE
     Dosage: 60 MILLIGRAM, QD DAILY, AT NIGHT, DAY 1-14 + DAY 29-42
     Route: 065
     Dates: start: 20250328
  32. MERCAPTOPURINE [Concomitant]
     Active Substance: MERCAPTOPURINE
     Dosage: 60 MILLIGRAM, QD DAILY, AT NIGHT, DAY 1-14 + DAY 29-42
     Route: 065
     Dates: start: 20250329
  33. MERCAPTOPURINE [Concomitant]
     Active Substance: MERCAPTOPURINE
     Dosage: 60 MILLIGRAM, QD DAILY, AT NIGHT, DAY 1-14 + DAY 29-42
     Route: 065
     Dates: start: 20250330
  34. MERCAPTOPURINE [Concomitant]
     Active Substance: MERCAPTOPURINE
     Dosage: 0.5 DOSAGE FORM, QD DAILY, AT NIGHT, DAY 1-14 + DAY 29-42
     Route: 065
     Dates: start: 20250331
  35. MERCAPTOPURINE [Concomitant]
     Active Substance: MERCAPTOPURINE
     Dosage: 0.5 DOSAGE FORM, QD DAILY, AT NIGHT, DAY 1-14 + DAY 29-42
     Route: 065
     Dates: start: 20250401
  36. MERCAPTOPURINE [Concomitant]
     Active Substance: MERCAPTOPURINE
     Dosage: 60 MILLIGRAM, QD DAILY, AT NIGHT, DAY 1-14 + DAY 29-42
     Route: 065
     Dates: start: 20250402
  37. MERCAPTOPURINE [Concomitant]
     Active Substance: MERCAPTOPURINE
     Dosage: 60 MILLIGRAM, QD DAILY, AT NIGHT, DAY 1-14 + DAY 29-42
     Route: 065
     Dates: start: 20250403
  38. MERCAPTOPURINE [Concomitant]
     Active Substance: MERCAPTOPURINE
     Dosage: 60 MILLIGRAM, QD DAILY, AT NIGHT, DAY 1-14 + DAY 29-42
     Route: 065
     Dates: start: 20250404
  39. MERCAPTOPURINE [Concomitant]
     Active Substance: MERCAPTOPURINE
     Dosage: 60 MILLIGRAM, QD DAILY, AT NIGHT, DAY 1-14 + DAY 29-42
     Route: 065
     Dates: start: 20250405
  40. MERCAPTOPURINE [Concomitant]
     Active Substance: MERCAPTOPURINE
     Dosage: 60 MILLIGRAM, QD DAILY, AT NIGHT, DAY 1-14 + DAY 29-42
     Route: 065
     Dates: start: 20250406
  41. MERCAPTOPURINE [Concomitant]
     Active Substance: MERCAPTOPURINE
     Dosage: 0.5 DOSAGE FORM, QD DAILY, AT NIGHT, DAY 1-14 + DAY 29-42
     Route: 065
     Dates: start: 20250407
  42. MERCAPTOPURINE [Concomitant]
     Active Substance: MERCAPTOPURINE
     Dosage: 0.5 DOSAGE FORM, QD DAILY, AT NIGHT, DAY 1-14 + DAY 29-42
     Route: 065
     Dates: start: 20250408
  43. MERCAPTOPURINE [Concomitant]
     Active Substance: MERCAPTOPURINE
     Dosage: 60 MILLIGRAM, QD DAILY, AT NIGHT, DAY 1-14 + DAY 29-42
     Route: 065
     Dates: start: 20250423
  44. MERCAPTOPURINE [Concomitant]
     Active Substance: MERCAPTOPURINE
     Dosage: 60 MILLIGRAM, QD DAILY, AT NIGHT, DAY 1-14 + DAY 29-42
     Route: 065
     Dates: start: 20250424
  45. MERCAPTOPURINE [Concomitant]
     Active Substance: MERCAPTOPURINE
     Dosage: 60 MILLIGRAM, QD DAILY, AT NIGHT, DAY 1-14 + DAY 29-42
     Route: 065
     Dates: start: 20250425
  46. MERCAPTOPURINE [Concomitant]
     Active Substance: MERCAPTOPURINE
     Dosage: 60 MILLIGRAM, QD DAILY, AT NIGHT, DAY 1-14 + DAY 29-42
     Route: 065
     Dates: start: 20250426
  47. MERCAPTOPURINE [Concomitant]
     Active Substance: MERCAPTOPURINE
     Dosage: 0.5 DOSAGE FORM, QD DAILY, AT NIGHT, DAY 1-14 + DAY 29-42
     Route: 065
     Dates: start: 20250427
  48. MERCAPTOPURINE [Concomitant]
     Active Substance: MERCAPTOPURINE
     Dosage: 0.5 DOSAGE FORM, QD DAILY, AT NIGHT, DAY 1-14 + DAY 29-42
     Route: 065
     Dates: start: 20250428
  49. MERCAPTOPURINE [Concomitant]
     Active Substance: MERCAPTOPURINE
     Dosage: 60 MILLIGRAM, QD DAILY, AT NIGHT, DAY 1-14 + DAY 29-42
     Route: 065
     Dates: start: 20250429
  50. MERCAPTOPURINE [Concomitant]
     Active Substance: MERCAPTOPURINE
     Dosage: 60 MILLIGRAM, QD DAILY, AT NIGHT, DAY 1-14 + DAY 29-42
     Route: 065
     Dates: start: 20250430
  51. MERCAPTOPURINE [Concomitant]
     Active Substance: MERCAPTOPURINE
     Dosage: 60 MILLIGRAM, QD DAILY, AT NIGHT, DAY 1-14 + DAY 29-42
     Route: 065
     Dates: start: 20250501
  52. MERCAPTOPURINE [Concomitant]
     Active Substance: MERCAPTOPURINE
     Dosage: 60 MILLIGRAM, QD DAILY, AT NIGHT, DAY 1-14 + DAY 29-42
     Route: 065
     Dates: start: 20250502
  53. MERCAPTOPURINE [Concomitant]
     Active Substance: MERCAPTOPURINE
     Dosage: 60 MILLIGRAM, QD DAILY, AT NIGHT, DAY 1-14 + DAY 29-42
     Route: 065
     Dates: start: 20250503
  54. MERCAPTOPURINE [Concomitant]
     Active Substance: MERCAPTOPURINE
     Dosage: 60 MILLIGRAM, QD DAILY, AT NIGHT, DAY 1-14 + DAY 29-42
     Route: 065
     Dates: start: 20250504
  55. MERCAPTOPURINE [Concomitant]
     Active Substance: MERCAPTOPURINE
     Dosage: 0.5 DOSAGE FORM, QD DAILY, AT NIGHT, DAY 1-14 + DAY 29-42
     Route: 065
     Dates: start: 20250505
  56. MERCAPTOPURINE [Concomitant]
     Active Substance: MERCAPTOPURINE
     Dosage: 0.5 DOSAGE FORM, QD DAILY, AT NIGHT, DAY 1-14 + DAY 29-42
     Route: 065
     Dates: start: 20250506
  57. CYCLOPHOSPHAMIDE [Concomitant]
     Active Substance: CYCLOPHOSPHAMIDE
     Indication: Philadelphia chromosome positive
     Route: 042
     Dates: start: 20250326
  58. CYCLOPHOSPHAMIDE [Concomitant]
     Active Substance: CYCLOPHOSPHAMIDE
     Indication: Acute lymphocytic leukaemia
     Route: 042
     Dates: start: 20250423
  59. METHOTREXATE [Concomitant]
     Active Substance: METHOTREXATE
     Indication: Philadelphia chromosome positive
     Route: 037
     Dates: start: 20250402
  60. METHOTREXATE [Concomitant]
     Active Substance: METHOTREXATE
     Indication: Acute lymphocytic leukaemia
     Route: 037
     Dates: start: 20250423
  61. METHOTREXATE [Concomitant]
     Active Substance: METHOTREXATE
     Route: 037
     Dates: start: 20250430
  62. METHOTREXATE [Concomitant]
     Active Substance: METHOTREXATE
     Route: 037
     Dates: start: 20250502
  63. METHOTREXATE [Concomitant]
     Active Substance: METHOTREXATE
     Route: 037
     Dates: start: 20250529
  64. METHOTREXATE [Concomitant]
     Active Substance: METHOTREXATE
     Route: 037
     Dates: start: 20250615
  65. METHOTREXATE [Concomitant]
     Active Substance: METHOTREXATE
     Route: 037
     Dates: start: 20250703
  66. METHOTREXATE [Concomitant]
     Active Substance: METHOTREXATE
     Route: 037
     Dates: start: 20250722
  67. METHOTREXATE [Concomitant]
     Active Substance: METHOTREXATE
     Route: 037
     Dates: start: 20250730
  68. METHOTREXATE [Concomitant]
     Active Substance: METHOTREXATE
     Route: 037
     Dates: start: 20250802
  69. METHOTREXATE [Concomitant]
     Active Substance: METHOTREXATE
     Route: 037
     Dates: start: 20250814
  70. PEG/L-ASPARAGINASE [Concomitant]
     Active Substance: PEGASPARGASE
     Indication: Philadelphia chromosome positive
     Route: 030
     Dates: start: 20250409
  71. PEG/L-ASPARAGINASE [Concomitant]
     Active Substance: PEGASPARGASE
     Indication: Acute lymphocytic leukaemia
     Route: 030
     Dates: start: 20250507
  72. CYTARABINE [Concomitant]
     Active Substance: CYTARABINE
     Indication: Philadelphia chromosome positive
     Route: 042
     Dates: start: 20250327
  73. CYTARABINE [Concomitant]
     Active Substance: CYTARABINE
     Indication: Acute lymphocytic leukaemia
     Route: 042
     Dates: start: 20250328
  74. CYTARABINE [Concomitant]
     Active Substance: CYTARABINE
     Route: 042
     Dates: start: 20250329
  75. CYTARABINE [Concomitant]
     Active Substance: CYTARABINE
     Route: 042
     Dates: start: 20250330
  76. CYTARABINE [Concomitant]
     Active Substance: CYTARABINE
     Route: 042
     Dates: start: 20250403
  77. CYTARABINE [Concomitant]
     Active Substance: CYTARABINE
     Route: 042
     Dates: start: 20250404
  78. CYTARABINE [Concomitant]
     Active Substance: CYTARABINE
     Route: 042
     Dates: start: 20250405
  79. CYTARABINE [Concomitant]
     Active Substance: CYTARABINE
     Route: 042
     Dates: start: 20250406
  80. CYTARABINE [Concomitant]
     Active Substance: CYTARABINE
     Route: 042
     Dates: start: 20250424
  81. CYTARABINE [Concomitant]
     Active Substance: CYTARABINE
     Route: 042
     Dates: start: 20250425
  82. CYTARABINE [Concomitant]
     Active Substance: CYTARABINE
     Route: 042
     Dates: start: 20250426
  83. CYTARABINE [Concomitant]
     Active Substance: CYTARABINE
     Route: 042
     Dates: start: 20250427
  84. CYTARABINE [Concomitant]
     Active Substance: CYTARABINE
     Route: 042
     Dates: start: 20250501
  85. CYTARABINE [Concomitant]
     Active Substance: CYTARABINE
     Route: 042
     Dates: start: 20250502
  86. CYTARABINE [Concomitant]
     Active Substance: CYTARABINE
     Route: 042
     Dates: start: 20250503
  87. CYTARABINE [Concomitant]
     Active Substance: CYTARABINE
     Route: 042
     Dates: start: 20250504
  88. SULFAMETHOXAZOLE\TRIMETHOPRIM [Concomitant]
     Active Substance: SULFAMETHOXAZOLE\TRIMETHOPRIM
     Indication: Product used for unknown indication
     Route: 065
  89. AMIKACIN [Concomitant]
     Active Substance: AMIKACIN
     Indication: Product used for unknown indication
     Route: 065
  90. CEFLEN [CEFALOTIN SODIUM] [Concomitant]
     Indication: Product used for unknown indication
     Route: 065
  91. DUPHALAC [Concomitant]
     Active Substance: LACTULOSE
     Indication: Product used for unknown indication
     Route: 065

REACTIONS (6)
  - Febrile neutropenia [Fatal]
  - Acute hepatic failure [Fatal]
  - Pneumonitis [Fatal]
  - Disseminated intravascular coagulation [Fatal]
  - Sepsis [Fatal]
  - Hepatic failure [Fatal]

NARRATIVE: CASE EVENT DATE: 20250101
